FAERS Safety Report 5422615-4 (Version None)
Quarter: 2007Q3

REPORT INFORMATION
  Report Type: 
  Country: None (occurrence: None)
  Receive Date: 20070730
  Receipt Date: 20070213
  Transmission Date: 20080115
  Serious: Yes (Life-Threatening, Hospitalization, Disabling, Other)
  Sender: FDA-Public Use
  Company Number: 200615213BWH

PATIENT
  Age: 69 Year
  Sex: Female

DRUGS (1)
  1. AVELOX [Suspect]
     Indication: DRUG USE FOR UNKNOWN INDICATION
     Dosage: 400 MG, QD, ORAL
     Route: 048
     Dates: start: 20060202

REACTIONS (20)
  - BLISTER [None]
  - BURNING SENSATION [None]
  - CONFUSIONAL STATE [None]
  - DRY SKIN [None]
  - ERYTHEMA [None]
  - FATIGUE [None]
  - LIVEDO RETICULARIS [None]
  - MALNUTRITION [None]
  - MENTAL STATUS CHANGES [None]
  - PAIN [None]
  - PALLOR [None]
  - RASH [None]
  - RASH GENERALISED [None]
  - RASH MACULAR [None]
  - SKIN EXFOLIATION [None]
  - SKIN LACERATION [None]
  - SKIN LESION [None]
  - SKIN ULCER [None]
  - STEVENS-JOHNSON SYNDROME [None]
  - TREMOR [None]
